FAERS Safety Report 20661638 (Version 1)
Quarter: 2022Q2

REPORT INFORMATION
  Report Type: Spontaneous
  Country: FR (occurrence: FR)
  Receive Date: 20220401
  Receipt Date: 20220401
  Transmission Date: 20220721
  Serious: Yes (Other)
  Sender: FDA-Public Use
  Company Number: None

PATIENT
  Age: 56 Year
  Sex: Female
  Weight: 70 kg

DRUGS (2)
  1. POMALIDOMIDE [Suspect]
     Active Substance: POMALIDOMIDE
     Indication: Plasma cell myeloma
     Dosage: 1 COMPRIME PAR JOUR 3 SEMAINES SUR 4
     Route: 048
     Dates: start: 20210420, end: 20210702
  2. DARATUMUMAB [Concomitant]
     Active Substance: DARATUMUMAB
     Indication: Plasma cell myeloma
     Route: 042
     Dates: start: 20210419

REACTIONS (4)
  - Confusional state [Recovered/Resolved]
  - Amnesia [Recovered/Resolved]
  - Condition aggravated [Recovered/Resolved]
  - Hypomania [Recovered/Resolved with Sequelae]

NARRATIVE: CASE EVENT DATE: 20210514
